FAERS Safety Report 9120035 (Version 2)
Quarter: 2013Q2

REPORT INFORMATION
  Report Type: Spontaneous
  Country: US (occurrence: US)
  Receive Date: 20130226
  Receipt Date: 20130411
  Transmission Date: 20140414
  Serious: Yes (Other)
  Sender: FDA-Public Use
  Company Number: US-PFIZER INC-2013068180

PATIENT
  Age: 30 Year
  Sex: Female
  Weight: 65.76 kg

DRUGS (4)
  1. LYRICA [Suspect]
     Indication: FIBROMYALGIA
     Dosage: 225 MG, 1X/DAY
     Route: 048
     Dates: start: 2011, end: 20120621
  2. HYDROCODONE W/ACETAMINOPHEN [Concomitant]
     Dosage: 325/10 MG, UNK
  3. MORPHINE [Concomitant]
     Dosage: 30 MG, 1X/DAY
  4. KLONOPIN [Concomitant]
     Dosage: 1 MG, 3X/DAY

REACTIONS (6)
  - Spinal disorder [Unknown]
  - Vitamin D decreased [Unknown]
  - Pain [Not Recovered/Not Resolved]
  - Dyspnoea [Not Recovered/Not Resolved]
  - Migraine [Not Recovered/Not Resolved]
  - Headache [Not Recovered/Not Resolved]
